FAERS Safety Report 14393383 (Version 1)
Quarter: 2018Q1

REPORT INFORMATION
  Report Type: Spontaneous
  Country: US (occurrence: US)
  Receive Date: 20180116
  Receipt Date: 20180116
  Transmission Date: 20180509
  Serious: Yes (Other)
  Sender: FDA-Public Use
  Company Number: US-AMGEN-USASP2018005465

PATIENT
  Age: 29 Year
  Sex: Male

DRUGS (4)
  1. ENBREL [Suspect]
     Active Substance: ETANERCEPT
     Dosage: 50 MG, Q2WK
     Route: 065
  2. ENBREL [Suspect]
     Active Substance: ETANERCEPT
     Dosage: 50 MG, QWK
     Route: 065
     Dates: start: 2013
  3. ENBREL [Suspect]
     Active Substance: ETANERCEPT
     Indication: RHEUMATOID ARTHRITIS
     Dosage: UNK UNK, QWK
     Route: 065
  4. ENBREL [Suspect]
     Active Substance: ETANERCEPT
     Dosage: UNK UNK, Q2MO
     Route: 065

REACTIONS (12)
  - Change of bowel habit [Unknown]
  - Abdominal pain upper [Unknown]
  - Dizziness [Unknown]
  - Pain [Unknown]
  - Rheumatoid arthritis [Unknown]
  - Tendonitis [Unknown]
  - Headache [Unknown]
  - Intentional product misuse [Unknown]
  - Nausea [Unknown]
  - Feeling abnormal [Unknown]
  - Abscess [Unknown]
  - Injection site pain [Unknown]

NARRATIVE: CASE EVENT DATE: 20180110
